FAERS Safety Report 19673695 (Version 1)
Quarter: 2021Q3

REPORT INFORMATION
  Report Type: Spontaneous
  Country: US (occurrence: US)
  Receive Date: 20210807
  Receipt Date: 20210807
  Transmission Date: 20211014
  Serious: Yes (Other)
  Sender: FDA-Public Use
  Company Number: None

PATIENT
  Age: 30 Year
  Sex: Female
  Weight: 90 kg

DRUGS (1)
  1. BUPROPION. [Suspect]
     Active Substance: BUPROPION
     Indication: DEPRESSION
     Dates: start: 20210307, end: 20210731

REACTIONS (4)
  - Product substitution issue [None]
  - Urticaria [None]
  - Rash [None]
  - Product formulation issue [None]

NARRATIVE: CASE EVENT DATE: 20210806
